FAERS Safety Report 26199812 (Version 1)
Quarter: 2025Q4

REPORT INFORMATION
  Report Type: Report from Study
  Country: CA (occurrence: CA)
  Receive Date: 20251225
  Receipt Date: 20251225
  Transmission Date: 20260117
  Serious: Yes (Hospitalization, Other)
  Sender: ROCHE
  Company Number: CA-ROCHE-10000447431

PATIENT
  Age: 72 Year
  Sex: Female

DRUGS (21)
  1. RITUXAN [Suspect]
     Active Substance: RITUXIMAB
     Indication: Rheumatoid arthritis
     Dosage: DRUG DOSE FIRST ADMINISTERED IS 1000 MG MILLIGRAM(S)?MOREDOSAGEINFO IS DAY 1, DAY 15
     Route: 042
     Dates: start: 20130423, end: 20231127
  2. RITUXAN [Suspect]
     Active Substance: RITUXIMAB
     Route: 042
     Dates: start: 20250316, end: 20250330
  3. RITUXIMAB [Suspect]
     Active Substance: RITUXIMAB
     Indication: Rheumatoid arthritis
     Dosage: 2 DOSES 2 WEEKS APART
     Route: 042
     Dates: start: 20250916, end: 20250930
  4. RUXIENCE [Suspect]
     Active Substance: RITUXIMAB-PVVR
     Indication: Rheumatoid arthritis
     Dosage: 2 DOSES 2 WEEKS APART
     Route: 042
     Dates: start: 202406, end: 202501
  5. RISEDRONATE SODIUM [Suspect]
     Active Substance: RISEDRONATE SODIUM
     Indication: Product used for unknown indication
     Route: 048
     Dates: start: 20251125
  6. ACETAMINOPHEN [Concomitant]
     Active Substance: ACETAMINOPHEN
     Indication: Premedication
     Route: 048
  7. BIOTIN [Concomitant]
     Active Substance: BIOTIN
  8. CANDESARTAN [Concomitant]
     Active Substance: CANDESARTAN
  9. CELEBREX [Concomitant]
     Active Substance: CELECOXIB
  10. DIPHENHYDRAMINE [Concomitant]
     Active Substance: DIPHENHYDRAMINE
     Indication: Premedication
     Route: 048
  11. MAGNESIUM [Concomitant]
     Active Substance: MAGNESIUM
  12. METHYLPREDNISOLONE [Concomitant]
     Active Substance: METHYLPREDNISOLONE
     Indication: Premedication
     Route: 042
  13. NORVASC [Concomitant]
     Active Substance: AMLODIPINE BESYLATE
  14. OMEGA 3 [Concomitant]
     Active Substance: CAPSAICIN
  15. SILICON DIOXIDE [Concomitant]
     Active Substance: SILICON DIOXIDE
  16. SYNTHROID [Concomitant]
     Active Substance: LEVOTHYROXINE SODIUM
  17. PANTOPRAZOLE MAGNESIUM [Concomitant]
     Active Substance: PANTOPRAZOLE MAGNESIUM
  18. ASPIRIN [Concomitant]
     Active Substance: ASPIRIN
     Indication: Product used for unknown indication
  19. DILTIAZEM [Concomitant]
     Active Substance: DILTIAZEM
     Indication: Product used for unknown indication
  20. ROSUVASTATIN [Concomitant]
     Active Substance: ROSUVASTATIN
     Indication: Product used for unknown indication
  21. VITAMIN D [Concomitant]
     Active Substance: VITAMIN D NOS
     Indication: Product used for unknown indication

REACTIONS (19)
  - Fatigue [Unknown]
  - Muscular weakness [Unknown]
  - Blood pressure systolic increased [Unknown]
  - Finger deformity [Unknown]
  - Joint range of motion decreased [Unknown]
  - Joint dislocation [Unknown]
  - Neck pain [Unknown]
  - Tendon pain [Unknown]
  - Arthralgia [Unknown]
  - Joint swelling [Unknown]
  - Ill-defined disorder [Unknown]
  - Hand deformity [Unknown]
  - Photosensitivity reaction [Unknown]
  - Therapeutic product effect decreased [Unknown]
  - Vertebrobasilar artery stenosis [Unknown]
  - Gastrooesophageal reflux disease [Unknown]
  - Myalgia [Unknown]
  - Rales [Unknown]
  - Salivary hyposecretion [Unknown]

NARRATIVE: CASE EVENT DATE: 20251125
